FAERS Safety Report 20100565 (Version 2)
Quarter: 2021Q4

REPORT INFORMATION
  Report Type: Spontaneous
  Country: US (occurrence: US)
  Receive Date: 20211123
  Receipt Date: 20211204
  Transmission Date: 20220303
  Serious: No
  Sender: FDA-Public Use
  Company Number: US-AMGEN-USASP2021181245

PATIENT
  Age: 65 Year
  Sex: Female
  Weight: 72.109 kg

DRUGS (2)
  1. CORLANOR [Suspect]
     Active Substance: IVABRADINE HYDROCHLORIDE
     Indication: Cardiac failure congestive
     Dosage: UNK, BID
     Route: 065
  2. CORLANOR [Suspect]
     Active Substance: IVABRADINE HYDROCHLORIDE
     Indication: Cardiomyopathy

REACTIONS (1)
  - Off label use [Unknown]
